FAERS Safety Report 20207860 (Version 1)
Quarter: 2021Q4

REPORT INFORMATION
  Report Type: Spontaneous
  Country: US (occurrence: None)
  Receive Date: 20211220
  Receipt Date: 20211220
  Transmission Date: 20220303
  Serious: Yes (Other)
  Sender: FDA-Public Use
  Company Number: None

PATIENT
  Age: 74 Year
  Sex: Female
  Weight: 60.3 kg

DRUGS (1)
  1. VASCEPA [Suspect]
     Active Substance: ICOSAPENT ETHYL
     Indication: Blood cholesterol increased
     Dosage: OTHER QUANTITY : 2 CAPSULE(S);?FREQUENCY : TWICE A DAY;?
     Route: 048
     Dates: start: 20211122, end: 20211203

REACTIONS (6)
  - Pain in extremity [None]
  - Pain in extremity [None]
  - Pain [None]
  - Insomnia [None]
  - Hypokinesia [None]
  - Gait disturbance [None]

NARRATIVE: CASE EVENT DATE: 20211203
